FAERS Safety Report 5885337-1 (Version None)
Quarter: 2008Q3

REPORT INFORMATION
  Report Type: 
  Country: None (occurrence: None)
  Receive Date: 20080916
  Receipt Date: 20080905
  Transmission Date: 20090109
  Serious: Yes (Other)
  Sender: FDA-Public Use
  Company Number: DE-PFIZER INC-2008074710

PATIENT
  Sex: Female

DRUGS (1)
  1. ZOLOFT [Suspect]
     Indication: OBSESSIVE-COMPULSIVE DISORDER
     Dosage: DAILY DOSE:150MG-FREQ:DAILY
     Route: 048
     Dates: start: 20080601

REACTIONS (2)
  - GALACTORRHOEA [None]
  - PROLACTINOMA [None]
